FAERS Safety Report 6439400-7 (Version None)
Quarter: 2009Q4

REPORT INFORMATION
  Report Type: 
  Country: None (occurrence: None)
  Receive Date: 20091111
  Receipt Date: 20091111
  Transmission Date: 20100525
  Serious: Yes (Hospitalization, Other)
  Sender: FDA-Public Use
  Company Number: None

PATIENT
  Age: 46 Year
  Sex: Male
  Weight: 92.9874 kg

DRUGS (1)
  1. PAROXETINE HCL [Suspect]
     Dosage: 20 MG DAILY PO
     Route: 048
     Dates: start: 20081210, end: 20090804

REACTIONS (1)
  - LOSS OF CONSCIOUSNESS [None]
